FAERS Safety Report 7544827-6 (Version None)
Quarter: 2011Q2

REPORT INFORMATION
  Report Type: 
  Country: None (occurrence: None)
  Receive Date: 20110614
  Receipt Date: 20091120
  Transmission Date: 20111010
  Serious: Yes (Other)
  Sender: FDA-Public Use
  Company Number: US-BAYER-200940919NA

PATIENT
  Sex: Female
  Weight: 91 kg

DRUGS (10)
  1. PROTONIX [Concomitant]
     Dosage: 40 MG, QD
     Route: 048
  2. HEPARIN [Concomitant]
     Dosage: 5,000 UNITS EVERY 8 HOURS
     Route: 042
  3. ALTACE [Concomitant]
     Dosage: 5 MG, BID
     Route: 048
  4. LASIX [Concomitant]
     Dosage: 20 MG, BID
     Route: 048
  5. PAXIL [Concomitant]
     Dosage: 20 MG, QD
     Route: 048
  6. TENORMIN [Concomitant]
     Dosage: 12.5 MG, BID
     Route: 048
  7. ACETYLSALICYLIC ACID SRT [Concomitant]
     Dosage: 162 MG, QD
     Route: 048
  8. TRASYLOL [Suspect]
     Indication: CORONARY ARTERY BYPASS
     Dosage: UNK
     Dates: start: 20020916
  9. LIPITOR [Concomitant]
     Dosage: 40 MG, QD
     Route: 048
  10. NOVOLIN 70/30 PREFILLED [Concomitant]
     Dosage: 70/30 25 UNITS EVERY 12 HOURS
     Route: 058

REACTIONS (11)
  - UNEVALUABLE EVENT [None]
  - ANXIETY [None]
  - FEAR [None]
  - RENAL INJURY [None]
  - INJURY [None]
  - RENAL FAILURE [None]
  - DEPRESSION [None]
  - ANHEDONIA [None]
  - PAIN [None]
  - MULTI-ORGAN FAILURE [None]
  - DISABILITY [None]
